FAERS Safety Report 24860926 (Version 1)
Quarter: 2025Q1

REPORT INFORMATION
  Report Type: Report from Study
  Country: TW (occurrence: TW)
  Receive Date: 20250120
  Receipt Date: 20250120
  Transmission Date: 20250409
  Serious: Yes (Other)
  Sender: REGENERON
  Company Number: TW-BAYER-2025A006199

PATIENT
  Age: 59 Year
  Sex: Female

DRUGS (7)
  1. EYLEA [Suspect]
     Active Substance: AFLIBERCEPT
     Indication: Neovascular age-related macular degeneration
     Route: 031
     Dates: start: 20241204
  2. DELONE [Concomitant]
     Indication: Product used for unknown indication
     Dosage: LEFT EYE, TID
  3. GENTAMICIN [Concomitant]
     Active Substance: GENTAMICIN
     Indication: Product used for unknown indication
  4. TON-PASS [Concomitant]
     Indication: Product used for unknown indication
     Route: 048
  5. TON-PASS [Concomitant]
     Dosage: UNK, TID
     Route: 048
  6. CON-N [Concomitant]
     Indication: Product used for unknown indication
     Dosage: BOTH EYES, QID
  7. CON-N [Concomitant]
     Dosage: BOTH EYES, TID

REACTIONS (7)
  - Xerophthalmia [Recovering/Resolving]
  - Keratitis [Recovered/Resolved]
  - Skin wound [Recovered/Resolved]
  - Ocular hyperaemia [Recovered/Resolved]
  - Contraindicated product administered [Unknown]
  - Labelled drug-disease interaction issue [Unknown]
  - Contraindicated product prescribed [Unknown]

NARRATIVE: CASE EVENT DATE: 20241201
